FAERS Safety Report 5207795-8 (Version None)
Quarter: 2006Q4

REPORT INFORMATION
  Report Type: 
  Country: None (occurrence: None)
  Receive Date: 20061030
  Receipt Date: 20060814
  Transmission Date: 20070319
  Serious: Yes (Life-Threatening)
  Sender: FDA-Public Use
  Company Number: 256080

PATIENT
  Age: 80 Year
  Sex: Male
  Weight: 78.5 kg

DRUGS (5)
  1. LEVEMIR [Suspect]
     Indication: INSULIN-REQUIRING TYPE II DIABETES MELLITUS
     Dosage: 14 IU + SLIDING SCALE, QD, SUBCUTANEOUS
     Route: 058
     Dates: start: 20060727
  2. HUMALOG [Concomitant]
  3. CLONIDINE [Concomitant]
  4. LOSARTAN POTASSIUM [Concomitant]
  5. FELODIPINE [Concomitant]

REACTIONS (1)
  - HYPOGLYCAEMIC COMA [None]
